FAERS Safety Report 7422835 (Version 10)
Quarter: 2013Q3

REPORT INFORMATION
  Report Type: Spontaneous
  Country: US (occurrence: US)
  Receive Date: 20100617
  Receipt Date: 20130826
  Transmission Date: 20140515
  Serious: Yes (Hospitalization, Other)
  Sender: FDA-Public Use
  Company Number: US-BIOGENIDEC-2010BI019728

PATIENT
  Age: 57 Year
  Sex: Female

DRUGS (17)
  1. AVONEX [Suspect]
     Indication: MULTIPLE SCLEROSIS
     Route: 030
     Dates: start: 19991001
  2. AVONEX [Suspect]
     Indication: MULTIPLE SCLEROSIS
     Route: 030
     Dates: start: 2000
  3. AVONEX [Suspect]
     Indication: MULTIPLE SCLEROSIS
     Route: 030
     Dates: start: 200405, end: 200810
  4. AVONEX [Suspect]
     Indication: MULTIPLE SCLEROSIS
     Route: 030
     Dates: start: 200905, end: 20100601
  5. AVONEX [Suspect]
     Indication: MULTIPLE SCLEROSIS
     Route: 030
     Dates: start: 201011
  6. AVONEX [Suspect]
     Indication: MULTIPLE SCLEROSIS
     Route: 030
     Dates: start: 20110801
  7. HYDRO QUINONE 4% [Concomitant]
     Indication: CHEMICAL INJURY
  8. ARIXTRA [Concomitant]
     Indication: THROMBOSIS
     Dates: start: 201006
  9. WARFARIN [Concomitant]
     Indication: THROMBOSIS
     Dates: start: 201006, end: 201006
  10. NEULASTA SHOT [Concomitant]
     Dates: start: 201005
  11. ORTHOVISC INJECTION [Concomitant]
     Indication: ARTHRITIS
     Dates: start: 2002
  12. PLAQUENIL [Concomitant]
     Indication: FOLLICULAR MUCINOSIS
     Dates: start: 201208
  13. PRAVASTATIN [Concomitant]
     Indication: BLOOD CHOLESTEROL INCREASED
  14. OMEPRAZOLE [Concomitant]
     Indication: GASTRIC ULCER
  15. TRETINOIN CREAM 0.1% [Concomitant]
     Indication: CHEMICAL INJURY
  16. HCTZ [Concomitant]
     Indication: BLOOD PRESSURE
     Dates: start: 2006
  17. LISINOPRIL [Concomitant]
     Indication: HYPERTENSION
     Dates: start: 2006

REACTIONS (28)
  - Road traffic accident [Recovered/Resolved]
  - Rotator cuff syndrome [Recovered/Resolved]
  - Breast cancer [Recovered/Resolved]
  - Thrombosis [Recovered/Resolved]
  - Anaemia [Not Recovered/Not Resolved]
  - Renal failure [Not Recovered/Not Resolved]
  - Memory impairment [Not Recovered/Not Resolved]
  - Transient ischaemic attack [Recovered/Resolved]
  - Amnesia [Not Recovered/Not Resolved]
  - Cognitive disorder [Not Recovered/Not Resolved]
  - Polyarthritis [Not Recovered/Not Resolved]
  - Hypertension [Not Recovered/Not Resolved]
  - Blood cholesterol increased [Not Recovered/Not Resolved]
  - Iritis [Not Recovered/Not Resolved]
  - Helicobacter infection [Unknown]
  - Burning sensation [Recovered/Resolved]
  - Abdominal pain upper [Recovered/Resolved]
  - Gastric ulcer [Not Recovered/Not Resolved]
  - Hypoaesthesia [Recovered/Resolved]
  - Injection site bruising [Recovered/Resolved]
  - Breast mass [Recovered/Resolved]
  - Follicular mucinosis [Not Recovered/Not Resolved]
  - Lung infection [Recovered/Resolved]
  - Pneumonitis [Unknown]
  - Peripheral coldness [Unknown]
  - Foot deformity [Unknown]
  - Musculoskeletal chest pain [Recovered/Resolved]
  - Arthritis [Not Recovered/Not Resolved]
